FAERS Safety Report 8060671 (Version 2)
Quarter: 2016Q3

REPORT INFORMATION
  Report Type: Report from Study
  Country: BR (occurrence: BR)
  Receive Date: 20110729
  Receipt Date: 20160805
  Transmission Date: 20161109
  Serious: Yes (Death, Hospitalization, Other)
  Sender: FDA-Public Use
  Company Number: PHHY2011BR67418

PATIENT
  Age: 84 Year
  Sex: Female

DRUGS (4)
  1. EXELON [Suspect]
     Active Substance: RIVASTIGMINE TARTRATE
     Indication: DEMENTIA ALZHEIMER^S TYPE
     Dosage: 4.5 MG, BID
     Route: 048
  2. EXELON [Suspect]
     Active Substance: RIVASTIGMINE TARTRATE
     Indication: DEMENTIA ALZHEIMER^S TYPE
     Dosage: 1.5 MG, BID
     Route: 048
  3. METFORMIN [Concomitant]
     Active Substance: METFORMIN HYDROCHLORIDE
     Indication: BLOOD GLUCOSE DECREASED
     Dosage: 2 DF, QD
     Route: 065
  4. EXELON [Suspect]
     Active Substance: RIVASTIGMINE TARTRATE
     Dosage: 2.5 OR 3 MG, BID
     Route: 048

REACTIONS (16)
  - Metastases to kidney [Fatal]
  - Metastases to lung [Fatal]
  - Fall [Unknown]
  - Head injury [Unknown]
  - Cardio-respiratory arrest [Fatal]
  - Diabetes mellitus [Fatal]
  - Blood pressure decreased [Unknown]
  - Metastases to ovary [Fatal]
  - Dyspnoea [Fatal]
  - Blood glucose fluctuation [Fatal]
  - Metastatic uterine cancer [Fatal]
  - Urosepsis [Fatal]
  - Weight decreased [Fatal]
  - Hypertension [Fatal]
  - Renal failure [Unknown]
  - Hypophagia [Fatal]

NARRATIVE: CASE EVENT DATE: 201005
